FAERS Safety Report 21822118 (Version 1)
Quarter: 2023Q1

REPORT INFORMATION
  Report Type: Spontaneous
  Country: NL (occurrence: NL)
  Receive Date: 20230105
  Receipt Date: 20230105
  Transmission Date: 20230418
  Serious: Yes (Other)
  Sender: FDA-Public Use
  Company Number: None

PATIENT
  Sex: Male
  Weight: 80 kg

DRUGS (1)
  1. PALIPERIDONE [Suspect]
     Active Substance: PALIPERIDONE
     Indication: Psychotic disorder
     Dosage: ONCE A MONTH, PALIPERIDON INJSUSP 100MG/ML / BRAND NAME NOT SPECIFIED, THERAPY END DATE : ASKU, UNIT
     Dates: start: 20220401

REACTIONS (3)
  - Suicidal ideation [Recovering/Resolving]
  - Asthenia [Recovering/Resolving]
  - Negative thoughts [Recovering/Resolving]
